FAERS Safety Report 8834102 (Version 2)
Quarter: 2013Q2

REPORT INFORMATION
  Report Type: Spontaneous
  Country: TR (occurrence: TR)
  Receive Date: 20121010
  Receipt Date: 20130624
  Transmission Date: 20140414
  Serious: Yes (Hospitalization, Other)
  Sender: FDA-Public Use
  Company Number: TR-ABBOTT-12P-161-0980318-00

PATIENT
  Age: 57 Year
  Sex: Male
  Weight: 78 kg

DRUGS (8)
  1. HUMIRA PRE-FILLED SYRINGE [Suspect]
     Indication: ANKYLOSING SPONDYLITIS
     Route: 058
     Dates: start: 20090930
  2. SINORETIK (LIZINOPRIL HCL) [Concomitant]
     Indication: PRODUCT USED FOR UNKNOWN INDICATION
     Route: 048
     Dates: start: 20120904
  3. MONOKET LONG (ISOSORBIT-5-NITRAT) [Concomitant]
     Indication: PRODUCT USED FOR UNKNOWN INDICATION
     Route: 048
     Dates: start: 20120904
  4. NORVASC [Concomitant]
     Indication: PRODUCT USED FOR UNKNOWN INDICATION
     Route: 048
     Dates: start: 20120904
  5. ADALAT [Concomitant]
     Indication: PRODUCT USED FOR UNKNOWN INDICATION
     Route: 048
     Dates: start: 20120904
  6. VASTAREL [Concomitant]
     Indication: PRODUCT USED FOR UNKNOWN INDICATION
     Route: 048
     Dates: start: 20120904
  7. BELOC [Concomitant]
     Indication: PRODUCT USED FOR UNKNOWN INDICATION
     Route: 048
     Dates: start: 20120904
  8. UNSPECIFIED MEDICATION [Concomitant]
     Indication: HYPERTENSION

REACTIONS (6)
  - Coronary artery occlusion [Recovering/Resolving]
  - Myocardial infarction [Recovered/Resolved]
  - Dysphagia [Unknown]
  - Dyspnoea [Unknown]
  - Chest pain [Unknown]
  - Myocardial infarction [Recovering/Resolving]
